FAERS Safety Report 5499535-2 (Version None)
Quarter: 2007Q4

REPORT INFORMATION
  Report Type: 
  Country: None (occurrence: None)
  Receive Date: 20071026
  Receipt Date: 20071023
  Transmission Date: 20080405
  Serious: Yes (Life-Threatening, Hospitalization)
  Sender: FDA-Public Use
  Company Number: PHBS2007CN17224

PATIENT
  Age: 20 Year
  Sex: Female

DRUGS (3)
  1. TRILEPTAL [Suspect]
     Indication: EPILEPSY
     Dosage: 22.5 G, ONCE/SINGLE
     Route: 048
     Dates: start: 20071016, end: 20071016
  2. TRILEPTAL [Suspect]
     Route: 048
     Dates: end: 20071015
  3. DRUG THERAPY NOS [Suspect]

REACTIONS (4)
  - COMA [None]
  - GASTRIC LAVAGE [None]
  - INTENTIONAL OVERDOSE [None]
  - SUICIDE ATTEMPT [None]
